FAERS Safety Report 12655988 (Version 2)
Quarter: 2021Q3

REPORT INFORMATION
  Report Type: Spontaneous
  Country: US (occurrence: US)
  Receive Date: 20160816
  Receipt Date: 20210908
  Transmission Date: 20211014
  Serious: No
  Sender: FDA-Public Use
  Company Number: US-ROCHE-1611384

PATIENT
  Age: 31 Year
  Sex: Female
  Weight: 77.3 kg

DRUGS (1)
  1. MIRCERA [Suspect]
     Active Substance: METHOXY POLYETHYLENE GLYCOL-EPOETIN BETA
     Indication: PRODUCT USED FOR UNKNOWN INDICATION
     Dosage: DOSE 1 OF 1
     Route: 065
     Dates: start: 20150710

REACTIONS (7)
  - Muscle strain [Unknown]
  - Anxiety [Unknown]
  - Panic reaction [Unknown]
  - Speech disorder [Unknown]
  - Dyspnoea [Unknown]
  - Nausea [Unknown]
  - Flushing [Unknown]

NARRATIVE: CASE EVENT DATE: 20150710
